FAERS Safety Report 10395818 (Version 1)
Quarter: 2014Q1

REPORT INFORMATION
  Report Type: Spontaneous
  Country: US (occurrence: None)
  Receive Date: 20130507
  Receipt Date: 20130507
  Transmission Date: 20141002
  Serious: No
  Sender: FDA-Public Use
  Company Number: PHEH2012US013101

PATIENT
  Age: 22 Year
  Sex: Female

DRUGS (8)
  1. AFINITOR (RAD) UNKNOWN [Suspect]
     Indication: TUBEROUS SCLEROSIS
     Route: 048
     Dates: start: 20120613
  2. TRANXENE (CLORAZEPATE DIPOTASSIUM) [Concomitant]
  3. TOPAMAX (TOPIRAMATE) [Concomitant]
  4. ABILIFY (ARIPRAZOLE) [Concomitant]
  5. NECON (ETHINYLESTRADIOL, NORETHISTERONE) [Concomitant]
  6. MELATONIN (MELATONIN) [Concomitant]
  7. ZOLOFT (SERTRALINE HYDROCHLORIDE) [Concomitant]
  8. SERTRALINE (SERTRALINE) [Concomitant]

REACTIONS (5)
  - Contusion [None]
  - Dry skin [None]
  - Cough [None]
  - Diarrhoea [None]
  - Obsessive-compulsive disorder [None]
